FAERS Safety Report 9915656 (Version 1)
Quarter: 2014Q1

REPORT INFORMATION
  Report Type: Spontaneous
  Country: US (occurrence: None)
  Receive Date: 20140219
  Receipt Date: 20140219
  Transmission Date: 20141002
  Serious: No
  Sender: FDA-Public Use
  Company Number: None

PATIENT
  Age: 60 Year
  Sex: Female
  Weight: 62.6 kg

DRUGS (6)
  1. LYRICA [Suspect]
     Indication: POST HERPETIC NEURALGIA
     Dosage: GRADUALLY INCREASE DOSE FROM 50 MG TO 100 MG
     Route: 048
     Dates: start: 20130919, end: 20131019
  2. LYRICA [Suspect]
     Indication: HERPES ZOSTER
     Dosage: GRADUALLY INCREASE DOSE FROM 50 MG TO 100 MG
     Route: 048
     Dates: start: 20130919, end: 20131019
  3. SPIRONOLACTONE [Concomitant]
  4. CARVEDILOL [Concomitant]
  5. CLONIDINE [Concomitant]
  6. BENADRYL [Concomitant]

REACTIONS (4)
  - Hypoaesthesia [None]
  - Paraesthesia [None]
  - Musculoskeletal stiffness [None]
  - Musculoskeletal stiffness [None]
